FAERS Safety Report 8320259-8 (Version None)
Quarter: 2012Q2

REPORT INFORMATION
  Report Type: 
  Country: None (occurrence: None)
  Receive Date: 20120426
  Receipt Date: 20120426
  Transmission Date: 20120825
  Serious: Yes (Hospitalization)
  Sender: FDA-Public Use
  Company Number: None

PATIENT
  Sex: Female
  Weight: 69.1 kg

DRUGS (3)
  1. CYCLOPHOSPHAMIDE [Suspect]
     Dosage: 1010 MG
  2. RITUXIMAB (MOAB C2B8 ANTI CD20, CHIMERIC) [Suspect]
     Dosage: 1300 MG
  3. PENTOSTATIN [Suspect]
     Dosage: 7 MG

REACTIONS (9)
  - ORAL PAIN [None]
  - LIP SWELLING [None]
  - MUCOSAL INFLAMMATION [None]
  - INADEQUATE ANALGESIA [None]
  - FACE OEDEMA [None]
  - CHAPPED LIPS [None]
  - DYSPHAGIA [None]
  - LIP HAEMORRHAGE [None]
  - BODY TEMPERATURE INCREASED [None]
